FAERS Safety Report 6410913-7 (Version None)
Quarter: 2009Q4

REPORT INFORMATION
  Report Type: 
  Country: None (occurrence: None)
  Receive Date: 20091022
  Receipt Date: 20091020
  Transmission Date: 20100525
  Serious: Yes (Other)
  Sender: FDA-Public Use
  Company Number: US-GENENTECH-292680

PATIENT

DRUGS (2)
  1. HERCEPTIN [Suspect]
     Indication: METASTATIC NEOPLASM
  2. HERCEPTIN [Suspect]
     Indication: THERAPEUTIC PROCEDURE

REACTIONS (1)
  - BILE DUCT OBSTRUCTION [None]
